FAERS Safety Report 13637033 (Version 1)
Quarter: 2017Q2

REPORT INFORMATION
  Report Type: Other
  Country: US (occurrence: US)
  Receive Date: 20170605
  Receipt Date: 20170605
  Transmission Date: 20170830
  Serious: No
  Sender: FDA-Public Use
  Company Number: US-ARALEZ PHARMACEUTICALS RD INC.-ARA-TP-US-2017-581

PATIENT
  Sex: Female
  Weight: 48.12 kg

DRUGS (3)
  1. METOPROLOL SUCCINATE. [Suspect]
     Active Substance: METOPROLOL SUCCINATE
     Indication: PALPITATIONS
     Route: 048
     Dates: start: 2017
  2. CENTRUM SILVER [Concomitant]
     Active Substance: MINERALS\VITAMINS
     Indication: SUPPLEMENTATION THERAPY
     Route: 048
  3. CITRACAL + D3 [Concomitant]
     Indication: SUPPLEMENTATION THERAPY
     Route: 048

REACTIONS (1)
  - Fatigue [Unknown]

NARRATIVE: CASE EVENT DATE: 2017
